FAERS Safety Report 12606095 (Version 1)
Quarter: 2016Q3

REPORT INFORMATION
  Report Type: Spontaneous
  Country: US (occurrence: None)
  Receive Date: 20160728
  Receipt Date: 20160728
  Transmission Date: 20161109
  Serious: No
  Sender: FDA-Public Use
  Company Number: None

PATIENT
  Age: 36 Year
  Sex: Female
  Weight: 58.06 kg

DRUGS (3)
  1. HUMIRA [Suspect]
     Active Substance: ADALIMUMAB
     Indication: CROHN^S DISEASE
     Dosage: 1 INJECTION(S) EVERY OTHER WEEK
     Dates: start: 20121001, end: 20160726
  2. PENTASA [Concomitant]
     Active Substance: MESALAMINE
  3. OSTEO BI FLEX [Concomitant]

REACTIONS (1)
  - Psoriasis [None]

NARRATIVE: CASE EVENT DATE: 20160725
